FAERS Safety Report 4379356-4 (Version None)
Quarter: 2004Q2

REPORT INFORMATION
  Report Type: 
  Country: None (occurrence: None)
  Receive Date: 20040615
  Receipt Date: 20040610
  Transmission Date: 20050107
  Serious: Yes (Other)
  Sender: FDA-Public Use
  Company Number: 04-06-0827

PATIENT
  Age: 38 Year
  Sex: Male
  Weight: 96 kg

DRUGS (1)
  1. TRAMADOL HCL [Suspect]
     Indication: ARTHRALGIA
     Dosage: MDU ORAL
     Route: 048

REACTIONS (6)
  - ABNORMAL DREAMS [None]
  - FEAR [None]
  - INSOMNIA [None]
  - MEDICATION ERROR [None]
  - MENTAL DISORDER [None]
  - PARANOIA [None]
